FAERS Safety Report 12462858 (Version 1)
Quarter: 2016Q2

REPORT INFORMATION
  Report Type: Spontaneous
  Country: US (occurrence: US)
  Receive Date: 20160614
  Receipt Date: 20160614
  Transmission Date: 20160815
  Serious: No
  Sender: FDA-Public Use
  Company Number: US-JNJFOC-20160419362

PATIENT
  Sex: Female

DRUGS (1)
  1. INVOKAMET [Suspect]
     Active Substance: CANAGLIFLOZIN\METFORMIN HYDROCHLORIDE
     Indication: PRODUCT USED FOR UNKNOWN INDICATION
     Dosage: 150 MG CANAGLIFLOZIN AND DOSE OF METFORMIN WAS UNSPECIFIED
     Route: 048
     Dates: start: 201604

REACTIONS (3)
  - Vulvovaginal burning sensation [Unknown]
  - Weight decreased [Unknown]
  - Vulvovaginal pruritus [Unknown]
